FAERS Safety Report 20598712 (Version 1)
Quarter: 2022Q1

REPORT INFORMATION
  Report Type: Spontaneous
  Country: AU (occurrence: AU)
  Receive Date: 20220315
  Receipt Date: 20220315
  Transmission Date: 20220423
  Serious: Yes (Hospitalization)
  Sender: FDA-Public Use
  Company Number: AU-PFIZER INC-202200378136

PATIENT
  Sex: Female

DRUGS (2)
  1. METHOTREXATE [Suspect]
     Active Substance: METHOTREXATE
     Dosage: UNK
     Dates: end: 202103
  2. ARAVA [Suspect]
     Active Substance: LEFLUNOMIDE

REACTIONS (3)
  - Drug intolerance [Unknown]
  - Immune system disorder [Unknown]
  - Drug ineffective [Unknown]
